FAERS Safety Report 7629942-0 (Version None)
Quarter: 2011Q3

REPORT INFORMATION
  Report Type: 
  Country: None (occurrence: None)
  Receive Date: 20110715
  Receipt Date: 20110704
  Transmission Date: 20111222
  Serious: Yes (Hospitalization)
  Sender: FDA-Public Use
  Company Number: KR-JNJFOC-20110702042

PATIENT
  Age: 72 Year
  Sex: Male
  Weight: 68 kg

DRUGS (17)
  1. MUCOPECT (AMBROXOL HYDROCHLORIDE) [Concomitant]
  2. GANATON (ITOPRIDE HYDROCHLORIDE) [Concomitant]
  3. BESTIDINE (FAMOTIDINE) [Concomitant]
  4. UNKNOWN MEDICATION (ALL OTHER THERAPEUTIC PRODUCTS) [Concomitant]
  5. TAZIDIME (CEFTAZIDIME) [Concomitant]
  6. NEUTROGIN (LENOGRASTIM) [Concomitant]
  7. VANCOMYCIN [Concomitant]
  8. GANATON (ITOPRIDE HYDROCHLORIDE) [Concomitant]
  9. DICODE SR (DIHTDROCODEINE) [Concomitant]
  10. LEVOFLOXACIN [Concomitant]
  11. ACETYLCYSTEINE [Concomitant]
  12. ACYCLOVIR [Concomitant]
  13. DACOGEN [Suspect]
     Indication: MYELODYSPLASTIC SYNDROME
     Dosage: 20MG/M2, INTRAVENOUS
     Route: 042
     Dates: start: 20090422, end: 20090426
  14. DACOGEN [Suspect]
     Indication: MYELODYSPLASTIC SYNDROME
     Dosage: 20MG/M2, INTRAVENOUS
     Route: 042
     Dates: start: 20090325, end: 20090329
  15. ULTRACET [Concomitant]
  16. DIFLUCAN [Concomitant]
  17. BACTRIM [Concomitant]

REACTIONS (3)
  - HYPOPHAGIA [None]
  - PYREXIA [None]
  - REFUSAL OF TREATMENT BY PATIENT [None]
